FAERS Safety Report 8875682 (Version 1)
Quarter: 2012Q4

REPORT INFORMATION
  Report Type: 
  Country: SV (occurrence: SV)
  Receive Date: 20121030
  Receipt Date: 20121030
  Transmission Date: 20130627
  Serious: Yes (Death, Hospitalization, Disabling)
  Sender: FDA-Public Use
  Company Number: SV-ROCHE-1101753

PATIENT
  Sex: Male
  Weight: 71 kg

DRUGS (6)
  1. RITUXIMAB [Suspect]
     Indication: NON-HODGKIN^S LYMPHOMA
     Route: 042
     Dates: start: 20120417
  2. CYCLOPHOSPHAMIDE [Concomitant]
     Indication: NON-HODGKIN^S LYMPHOMA
     Route: 042
     Dates: start: 20120417
  3. VINCRISTINE [Concomitant]
     Indication: NON-HODGKIN^S LYMPHOMA
     Route: 042
  4. DOXORUBICINE [Concomitant]
     Indication: NON-HODGKIN^S LYMPHOMA
     Route: 042
     Dates: start: 20120417
  5. PREDNISONE [Concomitant]
     Indication: NON-HODGKIN^S LYMPHOMA
     Route: 048
     Dates: start: 20120417
  6. PALONOSETRON [Concomitant]
     Indication: PROPHYLAXIS OF NAUSEA AND VOMITING
     Route: 042
     Dates: start: 20120414

REACTIONS (3)
  - Interstitial lung disease [Not Recovered/Not Resolved]
  - Cardiac disorder [Fatal]
  - Ventricular fibrillation [Fatal]
